FAERS Safety Report 14823219 (Version 4)
Quarter: 2020Q1

REPORT INFORMATION
  Report Type: Report from Study
  Country: TW (occurrence: TW)
  Receive Date: 20180427
  Receipt Date: 20200103
  Transmission Date: 20200409
  Serious: Yes (Hospitalization, Other)
  Sender: FDA-Public Use
  Company Number: PHHY2016TW035578

PATIENT
  Age: 55 Year
  Sex: Female
  Weight: 47 kg

DRUGS (42)
  1. PINAVERIUM [Concomitant]
     Active Substance: PINAVERIUM BROMIDE
     Indication: GASTROOESOPHAGEAL REFLUX DISEASE
     Dosage: 50 MG, UNK
     Route: 048
     Dates: start: 20160107, end: 20160113
  2. DOMPERIDONE [Concomitant]
     Active Substance: DOMPERIDONE
     Indication: GASTRITIS
     Dosage: 10 MG, UNK
     Route: 048
     Dates: start: 20180102
  3. TASIGNA [Suspect]
     Active Substance: NILOTINIB
     Dosage: 300 OT, UNK
     Route: 048
     Dates: start: 20170829
  4. ALPRAZOLAM. [Concomitant]
     Active Substance: ALPRAZOLAM
     Dosage: 0.5 MG
     Route: 048
     Dates: start: 20150908, end: 20160331
  5. FOSFOMYCIN [Concomitant]
     Active Substance: FOSFOMYCIN
     Indication: GASTRITIS
     Dosage: 3 G
     Route: 048
     Dates: start: 20161101, end: 20161216
  6. TASIGNA [Suspect]
     Active Substance: NILOTINIB
     Indication: CHRONIC MYELOID LEUKAEMIA
     Dosage: 600 OT, UNK
     Route: 048
     Dates: start: 20150428, end: 20150810
  7. LOPERAMIDE [Concomitant]
     Active Substance: LOPERAMIDE
     Indication: PROPHYLAXIS
     Dosage: 2 MG, UNK
     Route: 048
     Dates: start: 20160308, end: 20160308
  8. RABEPRAZOLE [Concomitant]
     Active Substance: RABEPRAZOLE
     Indication: GASTRITIS
     Dosage: 20 MG, UNK
     Route: 048
     Dates: start: 20161101, end: 20161108
  9. MOSAPRIDE [Concomitant]
     Active Substance: MOSAPRIDE
     Indication: GASTRITIS
     Dosage: 5 MG
     Route: 048
     Dates: start: 20160825, end: 20160927
  10. ACETAMINOPHEN. [Concomitant]
     Active Substance: ACETAMINOPHEN
     Indication: GASTRITIS
     Dosage: 500 MG
     Route: 048
     Dates: start: 20150818, end: 20150824
  11. TASIGNA [Suspect]
     Active Substance: NILOTINIB
     Dosage: 400 OT, UNK
     Route: 048
     Dates: start: 20170621, end: 20170814
  12. IOHEXOL [Concomitant]
     Active Substance: IOHEXOL
     Indication: PRODUCT USED FOR UNKNOWN INDICATION
     Dosage: 350 MG, UNK
     Route: 065
     Dates: start: 20170310, end: 20170310
  13. ALPRAZOLAM. [Concomitant]
     Active Substance: ALPRAZOLAM
     Dosage: 0.5 MG
     Route: 048
     Dates: start: 20170301, end: 20170926
  14. TOPAAL [Concomitant]
     Active Substance: ALGINIC ACID\ALUMINUM HYDROXIDE\MAGNESIUM CARBONATE
     Indication: GASTROOESOPHAGEAL REFLUX DISEASE
     Dosage: 540 MG, UNK
     Route: 048
     Dates: start: 20150825, end: 20150829
  15. ACETAMINOPHEN. [Concomitant]
     Active Substance: ACETAMINOPHEN
     Indication: GASTROOESOPHAGEAL REFLUX DISEASE
     Dosage: 500 MG
     Route: 048
     Dates: start: 20160317, end: 20160320
  16. ESOMEPRAZOLE. [Concomitant]
     Active Substance: ESOMEPRAZOLE MAGNESIUM
     Indication: GASTRITIS
     Dosage: 40 MG
     Route: 048
     Dates: start: 20160817, end: 20160818
  17. TASIGNA [Suspect]
     Active Substance: NILOTINIB
     Dosage: 300 OT, UNK
     Route: 048
     Dates: start: 20150908, end: 20150921
  18. FAMOTIDINE. [Concomitant]
     Active Substance: FAMOTIDINE
     Indication: GASTROOESOPHAGEAL REFLUX DISEASE
     Dosage: 20 MG, UNK
     Route: 048
     Dates: start: 20151125, end: 20160106
  19. FAMOTIDINE. [Concomitant]
     Active Substance: FAMOTIDINE
     Dosage: 20 MG
     Route: 048
     Dates: start: 20170403, end: 20170414
  20. TASIGNA [Suspect]
     Active Substance: NILOTINIB
     Dosage: 200 OT, UNK
     Route: 048
     Dates: start: 20170815, end: 20170828
  21. TOPAAL [Concomitant]
     Active Substance: ALGINIC ACID\ALUMINUM HYDROXIDE\MAGNESIUM CARBONATE
     Indication: GASTRITIS
     Dosage: 1 DF
     Route: 048
     Dates: start: 20160304, end: 20160304
  22. MOSAPRIDE [Concomitant]
     Active Substance: MOSAPRIDE
     Indication: GASTRIC ULCER
     Dosage: 5 MG, UNK
     Route: 048
     Dates: start: 20161101, end: 20161122
  23. METOCLOPRAMIDE. [Concomitant]
     Active Substance: METOCLOPRAMIDE
     Indication: GASTRITIS
     Dosage: 10 MG
     Route: 048
     Dates: start: 20160818, end: 20160819
  24. ALPRAZOLAM. [Concomitant]
     Active Substance: ALPRAZOLAM
     Indication: PROPHYLAXIS
     Dosage: 0.5 MG
     Route: 048
     Dates: start: 20150811, end: 20150824
  25. SIMETHICONE (DIMETHICONE) [Concomitant]
     Active Substance: DIMETHICONE
     Indication: GASTROOESOPHAGEAL REFLUX DISEASE
     Dosage: 40 MG
     Route: 048
     Dates: start: 20160305, end: 20160314
  26. TOPAAL [Concomitant]
     Active Substance: ALGINIC ACID\ALUMINUM HYDROXIDE\MAGNESIUM CARBONATE
     Dosage: 1 DF
     Route: 048
     Dates: start: 20170308, end: 20170315
  27. ESOMEPRAZOLE. [Concomitant]
     Active Substance: ESOMEPRAZOLE MAGNESIUM
     Indication: GASTROOESOPHAGEAL REFLUX DISEASE
     Dosage: 40 MG
     Route: 048
     Dates: start: 20160306, end: 20160419
  28. LICHIA [Concomitant]
     Indication: GASTRITIS
     Dosage: 1 DF
     Route: 048
     Dates: start: 20170411, end: 20170808
  29. LICHIA [Concomitant]
     Dosage: 1 DF
     Route: 048
     Dates: start: 20171205
  30. MAGNESIUM OXIDE. [Concomitant]
     Active Substance: MAGNESIUM OXIDE
     Indication: PROPHYLAXIS
     Dosage: 500 MG
     Route: 048
     Dates: start: 20160107, end: 20060120
  31. TASIGNA [Suspect]
     Active Substance: NILOTINIB
     Dosage: 450 OT, UNK
     Route: 048
     Dates: start: 20150922, end: 20151005
  32. TASIGNA [Suspect]
     Active Substance: NILOTINIB
     Dosage: 300 OT, UNK
     Route: 048
     Dates: start: 20151006, end: 20151209
  33. TASIGNA [Suspect]
     Active Substance: NILOTINIB
     Dosage: 450 OT, UNK
     Route: 048
     Dates: start: 20151210, end: 20160301
  34. TASIGNA [Suspect]
     Active Substance: NILOTINIB
     Dosage: 300 OT, UNK
     Route: 048
     Dates: start: 20160331, end: 20170620
  35. SIMETHICONE (DIMETHICONE) [Concomitant]
     Active Substance: DIMETHICONE
     Indication: GASTRIC ULCER
     Dosage: 80 MG, UNK
     Route: 048
     Dates: start: 20150505, end: 20150511
  36. ESOMEPRAZOLE. [Concomitant]
     Active Substance: ESOMEPRAZOLE MAGNESIUM
     Indication: GASTRITIS
     Dosage: 40 MG, UNK
     Route: 048
     Dates: start: 20160817, end: 20160818
  37. TOPAAL [Concomitant]
     Active Substance: ALGINIC ACID\ALUMINUM HYDROXIDE\MAGNESIUM CARBONATE
     Dosage: 1 DF
     Route: 048
     Dates: start: 20170131, end: 20170207
  38. FAMOTIDINE. [Concomitant]
     Active Substance: FAMOTIDINE
     Indication: GASTRITIS
     Dosage: 20 MG
     Route: 048
     Dates: start: 20160304, end: 20160331
  39. ACETAMINOPHEN. [Concomitant]
     Active Substance: ACETAMINOPHEN
     Dosage: 500 MG
     Route: 048
     Dates: start: 20170204, end: 20170709
  40. LICHIA [Concomitant]
     Dosage: 1 DF
     Route: 048
     Dates: start: 20170926, end: 20171017
  41. METOCLOPRAMIDE. [Concomitant]
     Active Substance: METOCLOPRAMIDE
     Dosage: 10 MG
     Route: 048
     Dates: start: 20170131, end: 20170131
  42. POTASSIUM GLUCONATE [Concomitant]
     Active Substance: POTASSIUM GLUCONATE
     Indication: PROPHYLAXIS
     Dosage: 595 MG
     Route: 048
     Dates: start: 20160307, end: 20160309

REACTIONS (20)
  - Pyrexia [Recovered/Resolved]
  - Haemoglobin abnormal [Unknown]
  - Blood glucose increased [Unknown]
  - Red blood cell count decreased [Unknown]
  - Urinary tract infection [Not Recovered/Not Resolved]
  - Platelet count decreased [Unknown]
  - Feeling cold [Recovered/Resolved]
  - Dysuria [Recovered/Resolved]
  - Genital herpes simplex [Not Recovered/Not Resolved]
  - Pollakiuria [Recovered/Resolved]
  - Flank pain [Recovered/Resolved]
  - Pollakiuria [Not Recovered/Not Resolved]
  - Urinary tract infection [Recovered/Resolved]
  - Pyelocaliectasis [Recovered/Resolved]
  - Tubulointerstitial nephritis [Recovered/Resolved with Sequelae]
  - Pyelonephritis acute [Recovered/Resolved with Sequelae]
  - Pyrexia [Recovered/Resolved]
  - Hydronephrosis [Recovered/Resolved]
  - Abdominal pain lower [Not Recovered/Not Resolved]
  - Pyelonephritis acute [Recovered/Resolved]

NARRATIVE: CASE EVENT DATE: 20151229
